FAERS Safety Report 16965966 (Version 1)
Quarter: 2019Q4

REPORT INFORMATION
  Report Type: Spontaneous
  Country: US (occurrence: US)
  Receive Date: 20191028
  Receipt Date: 20191028
  Transmission Date: 20200122
  Serious: Yes (Other)
  Sender: FDA-Public Use
  Company Number: US-AMGEN-USASP2019175166

PATIENT
  Sex: Male

DRUGS (3)
  1. CALCIUM [Concomitant]
     Active Substance: CALCIUM
     Dosage: UNK UNK, QD
  2. XGEVA [Suspect]
     Active Substance: DENOSUMAB
     Indication: PRODUCT USED FOR UNKNOWN INDICATION
     Dosage: UNK
     Route: 065
  3. XTANDI [Suspect]
     Active Substance: ENZALUTAMIDE
     Indication: PROSTATE CANCER
     Dosage: 160 MILLIGRAM, TAKE 4 CAPSULES,QD
     Route: 065
     Dates: start: 20151223

REACTIONS (5)
  - Gastrooesophageal reflux disease [Unknown]
  - Gynaecomastia [Unknown]
  - Retinal operation [Unknown]
  - Hypocalcaemia [Unknown]
  - Osteosclerosis [Recovering/Resolving]

NARRATIVE: CASE EVENT DATE: 20170522
